FAERS Safety Report 11365073 (Version 3)
Quarter: 2015Q4

REPORT INFORMATION
  Report Type: Report from Study
  Country: AU (occurrence: AU)
  Receive Date: 20150811
  Receipt Date: 20151124
  Transmission Date: 20160304
  Serious: Yes (Hospitalization)
  Sender: FDA-Public Use
  Company Number: AU-BIOGENIDEC-2015BI109660

PATIENT
  Age: 70 Year
  Sex: Female

DRUGS (1)
  1. PLEGRIDY [Suspect]
     Active Substance: PEGINTERFERON BETA-1A
     Indication: MULTIPLE SCLEROSIS
     Route: 058
     Dates: start: 20150324

REACTIONS (8)
  - Mobility decreased [Unknown]
  - Systemic lupus erythematosus [Not Recovered/Not Resolved]
  - Bone disorder [Not Recovered/Not Resolved]
  - Deep vein thrombosis [Unknown]
  - Weight bearing difficulty [Unknown]
  - Femur fracture [Not Recovered/Not Resolved]
  - Drug hypersensitivity [Recovered/Resolved]
  - Fall [Recovered/Resolved]

NARRATIVE: CASE EVENT DATE: 201504
